FAERS Safety Report 25698903 (Version 1)
Quarter: 2025Q3

REPORT INFORMATION
  Report Type: Spontaneous
  Country: US (occurrence: None)
  Receive Date: 20250818
  Receipt Date: 20250818
  Transmission Date: 20251021
  Serious: Yes (Death)
  Sender: FDA-CTU
  Company Number: None

PATIENT
  Age: 89 Year
  Sex: Male

DRUGS (2)
  1. LISINOPRIL [Suspect]
     Active Substance: LISINOPRIL
  2. LISINOPRIL [Concomitant]
     Active Substance: LISINOPRIL

REACTIONS (6)
  - Hypophagia [None]
  - Dehydration [None]
  - Blood creatinine increased [None]
  - Hyperkalaemia [None]
  - Lethargy [None]
  - Cardio-respiratory arrest [None]

NARRATIVE: CASE EVENT DATE: 20240606
